FAERS Safety Report 20986912 (Version 2)
Quarter: 2022Q3

REPORT INFORMATION
  Report Type: Spontaneous
  Country: US (occurrence: US)
  Receive Date: 20220621
  Receipt Date: 20220727
  Transmission Date: 20221026
  Serious: No
  Sender: FDA-Public Use
  Company Number: US-PFIZER INC-202200792204

PATIENT
  Age: 15 Year
  Sex: Male
  Weight: 65.77 kg

DRUGS (1)
  1. GENOTROPIN [Suspect]
     Active Substance: SOMATROPIN
     Indication: Growth hormone deficiency
     Dosage: 4.4 MG NIGHTLY

REACTIONS (3)
  - Device breakage [Unknown]
  - Device delivery system issue [Unknown]
  - Device physical property issue [Unknown]
